FAERS Safety Report 4902013-X (Version None)
Quarter: 2006Q1

REPORT INFORMATION
  Report Type: 
  Country: None (occurrence: None)
  Receive Date: 20060202
  Receipt Date: 20060202
  Transmission Date: 20060701
  Serious: Yes (Other)
  Sender: FDA-Public Use
  Company Number: None

PATIENT
  Sex: Male
  Weight: 65.318 kg

DRUGS (1)
  1. AMIFOSTINE [Suspect]
     Indication: DRY MOUTH
     Dosage: 500MG SQ DAILY
     Route: 058
     Dates: start: 20060131

REACTIONS (2)
  - LARYNGEAL OEDEMA [None]
  - SWOLLEN TONGUE [None]
